FAERS Safety Report 4701730-4 (Version None)
Quarter: 2005Q2

REPORT INFORMATION
  Report Type: 
  Country: None (occurrence: None)
  Receive Date: 20050627
  Receipt Date: 20050614
  Transmission Date: 20051028
  Serious: No
  Sender: FDA-Public Use
  Company Number: 430002E05DEU

PATIENT
  Age: 70 Year
  Sex: Male

DRUGS (2)
  1. NOVANTRONE [Suspect]
     Indication: CHRONIC LYMPHOCYTIC LEUKAEMIA
     Dosage: 10 MG/M2, 3 COURSE
     Route: 042
  2. BENDAMUSTINE [Concomitant]

REACTIONS (4)
  - CARDIOMYOPATHY [None]
  - CYANOSIS [None]
  - RHONCHI [None]
  - WHEEZING [None]
